FAERS Safety Report 7960881-1 (Version None)
Quarter: 2011Q4

REPORT INFORMATION
  Report Type: 
  Country: None (occurrence: None)
  Receive Date: 20111130
  Receipt Date: 20111115
  Transmission Date: 20120403
  Serious: Yes (Other)
  Sender: FDA-Public Use
  Company Number: GGEL20111101435

PATIENT
  Age: 81 Year
  Sex: Female

DRUGS (6)
  1. LEVODOPA [Concomitant]
  2. ARIPIPRAZOLE [Concomitant]
  3. ATIVAN [Concomitant]
  4. GABAPENTIN [Suspect]
     Indication: BIPOLAR DISORDER
     Dosage: 800 MILLIGRAM, 2 IN 1 D
  5. LITHIUIM LITHIUIM) [Concomitant]
  6. CARBIDOPA (CARBIDOPA) [Concomitant]

REACTIONS (23)
  - HYPERTENSIVE CRISIS [None]
  - WITHDRAWAL SYNDROME [None]
  - UPPER RESPIRATORY TRACT INFECTION [None]
  - SOMATOFORM DISORDER [None]
  - DROOLING [None]
  - ABNORMAL BEHAVIOUR [None]
  - JUDGEMENT IMPAIRED [None]
  - FLUID INTAKE REDUCED [None]
  - OROPHARYNGEAL PAIN [None]
  - MENTAL IMPAIRMENT [None]
  - DRUG LEVEL INCREASED [None]
  - MENTAL STATUS CHANGES [None]
  - DISORIENTATION [None]
  - DYSARTHRIA [None]
  - DYSTHYMIC DISORDER [None]
  - INSOMNIA [None]
  - PAIN [None]
  - COUGH [None]
  - ASTHENIA [None]
  - INFLUENZA LIKE ILLNESS [None]
  - CHEST PAIN [None]
  - GENERAL PHYSICAL HEALTH DETERIORATION [None]
  - BEDRIDDEN [None]
